FAERS Safety Report 11861038 (Version 10)
Quarter: 2017Q2

REPORT INFORMATION
  Report Type: Spontaneous
  Country: US (occurrence: US)
  Receive Date: 20151222
  Receipt Date: 20170609
  Transmission Date: 20170829
  Serious: Yes (Hospitalization, Other)
  Sender: FDA-Public Use
  Company Number: US-TEVA-619780USA

PATIENT
  Age: 66 Year
  Sex: Male
  Weight: 77.91 kg

DRUGS (34)
  1. FLUOXETINE [Suspect]
     Active Substance: FLUOXETINE HYDROCHLORIDE
     Indication: DEPRESSION
  2. WARFARIN [Suspect]
     Active Substance: WARFARIN
     Route: 065
     Dates: end: 20160219
  3. DIGOXIN. [Concomitant]
     Active Substance: DIGOXIN
  4. POTASSIUM [Concomitant]
     Active Substance: POTASSIUM
  5. PEPCID [Concomitant]
     Active Substance: FAMOTIDINE
  6. PROTONIX [Concomitant]
     Active Substance: PANTOPRAZOLE SODIUM
  7. MUCINEX [Concomitant]
     Active Substance: GUAIFENESIN
  8. BRILINTA [Suspect]
     Active Substance: TICAGRELOR
     Route: 065
     Dates: end: 20151203
  9. METOPROLOL SUCCINATE ER [Concomitant]
     Active Substance: METOPROLOL SUCCINATE
  10. VANCOMYCIN [Concomitant]
     Active Substance: VANCOMYCIN
  11. IRON [Concomitant]
     Active Substance: IRON
  12. FOLIC ACID. [Concomitant]
     Active Substance: FOLIC ACID
  13. MULTIVITAMIN [Concomitant]
     Active Substance: VITAMINS
  14. LASIX [Concomitant]
     Active Substance: FUROSEMIDE
  15. ATORVASTATIN [Suspect]
     Active Substance: ATORVASTATIN
     Route: 065
  16. PROBIOTIC [Concomitant]
     Active Substance: PROBIOTICS NOS
  17. AFRIN [Concomitant]
     Active Substance: OXYMETAZOLINE
  18. AZITHROMYCIN ANHYDROUS. [Concomitant]
     Active Substance: AZITHROMYCIN ANHYDROUS
  19. PLAVIX [Concomitant]
     Active Substance: CLOPIDOGREL BISULFATE
  20. BABY ASPIRIN [Concomitant]
     Active Substance: ASPIRIN
  21. COUMADIN [Concomitant]
     Active Substance: WARFARIN SODIUM
  22. SYNTHROID [Concomitant]
     Active Substance: LEVOTHYROXINE SODIUM
  23. TRUBIOTICS [Concomitant]
     Active Substance: BIFIDOBACTERIUM LONGUM\LACTOBACILLUS ACIDOPHILUS
  24. JUVEN [Concomitant]
     Active Substance: .BETA.-HYDROXYISOVALERIC ACID\ARGININE\GLUTAMINE
  25. LISINOPRIL. [Concomitant]
     Active Substance: LISINOPRIL
  26. FLOMAX [Concomitant]
     Active Substance: TAMSULOSIN HYDROCHLORIDE
  27. HYDROCODONE [Concomitant]
     Active Substance: HYDROCODONE
  28. ONDANSETRON [Concomitant]
     Active Substance: ONDANSETRON
  29. CETIRIZINE [Concomitant]
     Active Substance: CETIRIZINE HYDROCHLORIDE
  30. METOPROLOL TARTRATE. [Concomitant]
     Active Substance: METOPROLOL TARTRATE
  31. FUROSEMIDE. [Suspect]
     Active Substance: FUROSEMIDE
     Dates: start: 20160910
  32. TRADJENTA [Concomitant]
     Active Substance: LINAGLIPTIN
  33. SPIRONOLACTONE. [Concomitant]
     Active Substance: SPIRONOLACTONE
  34. DICYCLOMINE [Concomitant]
     Active Substance: DICYCLOMINE HYDROCHLORIDE

REACTIONS (50)
  - Internal haemorrhage [Recovered/Resolved]
  - Sepsis [Unknown]
  - Staphylococcal infection [Not Recovered/Not Resolved]
  - Atrial fibrillation [Unknown]
  - Productive cough [Unknown]
  - Blood pressure decreased [Recovered/Resolved]
  - Decubitus ulcer [Recovered/Resolved]
  - Skin ulcer [Recovered/Resolved]
  - Constipation [Recovered/Resolved]
  - Anxiety [Not Recovered/Not Resolved]
  - Diarrhoea [Recovered/Resolved]
  - Hepatic infection [Recovered/Resolved]
  - Weight decreased [Recovered/Resolved]
  - Abscess [Recovered/Resolved]
  - Joint swelling [Unknown]
  - Nausea [Recovered/Resolved]
  - Abdominal pain upper [Unknown]
  - Blood iron abnormal [Recovered/Resolved]
  - Wound [Recovered/Resolved]
  - Thrombosis [Unknown]
  - Clostridium difficile infection [Recovered/Resolved]
  - Nasal congestion [Unknown]
  - Peripheral swelling [Unknown]
  - Fluid intake reduced [Unknown]
  - Brain natriuretic peptide increased [Unknown]
  - Blood albumin decreased [Not Recovered/Not Resolved]
  - Atelectasis [Unknown]
  - Dysgeusia [Recovered/Resolved]
  - Fatigue [Unknown]
  - Urine output decreased [Unknown]
  - Oedema [Not Recovered/Not Resolved]
  - Protein total decreased [Unknown]
  - Pleural effusion [Not Recovered/Not Resolved]
  - Dysphagia [Recovered/Resolved]
  - Nephrolithiasis [Recovered/Resolved]
  - Urinary tract infection [Unknown]
  - Injury [Recovered/Resolved]
  - Rotator cuff syndrome [Not Recovered/Not Resolved]
  - Paraesthesia [Unknown]
  - Cardiac failure congestive [Unknown]
  - Dyspnoea [Recovering/Resolving]
  - Sinusitis [Recovered/Resolved]
  - Oedema [Recovered/Resolved]
  - Body temperature decreased [Unknown]
  - Viral upper respiratory tract infection [Unknown]
  - Haemoglobin decreased [Recovered/Resolved]
  - Peritoneal haematoma [Recovered/Resolved]
  - Upper respiratory tract infection [Unknown]
  - Haematoma [Recovered/Resolved]
  - Malnutrition [Unknown]

NARRATIVE: CASE EVENT DATE: 2016
